FAERS Safety Report 23688449 (Version 1)
Quarter: 2024Q1

REPORT INFORMATION
  Report Type: Spontaneous
  Country: TW (occurrence: TW)
  Receive Date: 20240329
  Receipt Date: 20240329
  Transmission Date: 20240410
  Serious: Yes (Death, Other)
  Sender: FDA-Public Use
  Company Number: TW-INCYTE CORPORATION-2023IN012128

PATIENT

DRUGS (2)
  1. PEMAZYRE [Suspect]
     Active Substance: PEMIGATINIB
     Indication: Hepatobiliary cancer
     Dosage: 13.5 MILLIGRAM
     Route: 048
     Dates: start: 202306
  2. PEMAZYRE [Suspect]
     Active Substance: PEMIGATINIB
     Dosage: UNK
     Route: 048

REACTIONS (5)
  - Hepatobiliary cancer [Fatal]
  - Disease progression [Fatal]
  - Onychomadesis [Unknown]
  - Arthralgia [Unknown]
  - Palmar-plantar erythrodysaesthesia syndrome [Unknown]
